FAERS Safety Report 9061042 (Version 1)
Quarter: 2013Q1

REPORT INFORMATION
  Report Type: Spontaneous
  Country: US (occurrence: US)
  Receive Date: 20130213
  Receipt Date: 20130213
  Transmission Date: 20140127
  Serious: No
  Sender: FDA-Public Use
  Company Number: US-BIOGENIDEC-2013BI011016

PATIENT
  Age: 46 Year
  Sex: Female

DRUGS (1)
  1. TYSABRI [Suspect]
     Indication: MULTIPLE SCLEROSIS
     Route: 042
     Dates: start: 20120807, end: 20121004

REACTIONS (4)
  - Gingival infection [Recovered/Resolved]
  - Urinary tract infection [Recovered/Resolved]
  - Oropharyngeal pain [Recovered/Resolved]
  - Pyrexia [Recovered/Resolved]
